FAERS Safety Report 21303766 (Version 1)
Quarter: 2022Q3

REPORT INFORMATION
  Report Type: Spontaneous
  Country: US (occurrence: None)
  Receive Date: 20220907
  Receipt Date: 20220907
  Transmission Date: 20221027
  Serious: Yes (Hospitalization)
  Sender: FDA-Public Use
  Company Number: None

PATIENT
  Age: 75 Year
  Sex: Female
  Weight: 47.9 kg

DRUGS (18)
  1. LENALIDOMIDE [Suspect]
     Active Substance: LENALIDOMIDE
     Indication: Myelodysplastic syndrome
     Dosage: FREQUENCY : DAILY;?
     Route: 048
     Dates: start: 202207
  2. ARANESP [Concomitant]
     Active Substance: DARBEPOETIN ALFA
  3. ASPIRIN [Concomitant]
     Active Substance: ASPIRIN
  4. BACLOFEN [Concomitant]
     Active Substance: BACLOFEN
  5. CALCITONIN [Concomitant]
     Active Substance: CALCITONIN
  6. CEFACLOR [Concomitant]
     Active Substance: CEFACLOR
  7. DIAZEPAM [Concomitant]
     Active Substance: DIAZEPAM
  8. FOLIC ACID [Concomitant]
     Active Substance: FOLIC ACID
  9. HYDROCORTISONE [Concomitant]
     Active Substance: HYDROCORTISONE
  10. LASIX [Concomitant]
     Active Substance: FUROSEMIDE
  11. MIRALAX [Concomitant]
     Active Substance: POLYETHYLENE GLYCOL 3350
  12. PANTOPRAZOLE [Concomitant]
     Active Substance: PANTOPRAZOLE
  13. PAROXETINE [Concomitant]
     Active Substance: PAROXETINE
  14. SYNTHROID [Concomitant]
     Active Substance: LEVOTHYROXINE SODIUM
  15. TYLENOL W/CODEINE#3 [Concomitant]
  16. VITAMIN B12 [Concomitant]
     Active Substance: CYANOCOBALAMIN
  17. VITAMIN C [Concomitant]
     Active Substance: ASCORBIC ACID
  18. VITAMIN D [Concomitant]
     Active Substance: VITAMIN D NOS

REACTIONS (2)
  - Dyspnoea [None]
  - Pulmonary mass [None]
